FAERS Safety Report 9314816 (Version 1)
Quarter: 2013Q2

REPORT INFORMATION
  Report Type: Spontaneous
  Country: GB (occurrence: GB)
  Receive Date: 20130529
  Receipt Date: 20130529
  Transmission Date: 20140414
  Serious: Yes (Hospitalization)
  Sender: FDA-Public Use
  Company Number: GB-PFIZER INC-2003170686GB

PATIENT
  Age: 71 Year
  Sex: Female

DRUGS (18)
  1. ATENOLOL [Suspect]
     Dosage: 50 MG, 1X/DAY
     Route: 048
     Dates: start: 200303
  2. ATENOLOL [Suspect]
     Dosage: 25 MG, 1X/DAY
     Route: 048
     Dates: end: 20030618
  3. CO-TRIMOXAZOLE [Suspect]
     Indication: INFECTION
     Dosage: UNK
     Route: 048
     Dates: start: 20030308, end: 20030318
  4. CO-TRIMOXAZOLE [Suspect]
     Indication: URINARY TRACT INFECTION
     Dosage: UNK
     Route: 065
     Dates: start: 20030614, end: 20030619
  5. ROFECOXIB [Suspect]
     Dosage: 25 MG, QD
     Route: 065
     Dates: start: 200303, end: 20030618
  6. ASPIRINE [Concomitant]
     Dosage: UNK
     Route: 065
     Dates: start: 200303
  7. ALENDRONATE SODIUM [Concomitant]
     Dosage: 70 MG, WEEKLY
     Route: 065
     Dates: start: 200303
  8. VISCOTEARS [Concomitant]
     Dosage: UNK
     Route: 065
     Dates: start: 200306
  9. FOLIC ACID [Concomitant]
     Dosage: 5 MG, DAILY
     Route: 065
     Dates: start: 200306
  10. GABAPENTIN [Concomitant]
     Dosage: 300 MG, 3X/DAY
     Route: 065
     Dates: start: 200303
  11. LACTULOSE [Concomitant]
     Dosage: 10 MG, 2X/DAY
     Dates: start: 200303
  12. LANSOPRAZOLE [Concomitant]
     Dosage: 15 MG, DAILY
     Route: 065
     Dates: end: 200303
  13. VITAMIN B-COMPLEX [Concomitant]
     Dosage: UNK
     Route: 065
     Dates: start: 200303
  14. NITRAZEPAM [Concomitant]
     Dosage: UNK
     Route: 065
     Dates: start: 200303
  15. CO-CODAMOL [Concomitant]
     Dosage: UNK
     Route: 065
     Dates: start: 200303
  16. RANITIDINE [Concomitant]
     Dosage: 150 MG, 2X/DAY
     Route: 065
     Dates: start: 200306
  17. SENNA [Concomitant]
     Dosage: 15 MG, DAILY
     Route: 065
     Dates: start: 200303
  18. SIMVASTATIN [Concomitant]
     Dosage: 40 MG, DAILY
     Route: 065
     Dates: start: 20030609

REACTIONS (5)
  - Hypotension [Recovering/Resolving]
  - Hyperkalaemia [Recovering/Resolving]
  - Heart rate decreased [Recovering/Resolving]
  - Malaise [Recovering/Resolving]
  - Circulatory collapse [Recovering/Resolving]
